FAERS Safety Report 12622787 (Version 2)
Quarter: 2016Q3

REPORT INFORMATION
  Report Type: Spontaneous
  Country: None (occurrence: DE)
  Receive Date: 20160804
  Receipt Date: 20160815
  Transmission Date: 20161109
  Serious: Yes (Hospitalization)
  Sender: FDA-Public Use
  Company Number: DE-MEDAC PHARMA, INC.-1055866

PATIENT
  Sex: Female
  Weight: 81 kg

DRUGS (1)
  1. METEX [Suspect]
     Active Substance: METFORMIN HYDROCHLORIDE
     Indication: ANKYLOSING SPONDYLITIS
     Route: 048
     Dates: start: 20120619

REACTIONS (2)
  - Product use issue [None]
  - Uterine polyp [Recovered/Resolved]
